FAERS Safety Report 13397787 (Version 1)
Quarter: 2017Q2

REPORT INFORMATION
  Report Type: Spontaneous
  Country: JP (occurrence: JP)
  Receive Date: 20170403
  Receipt Date: 20170403
  Transmission Date: 20170830
  Serious: Yes (Hospitalization)
  Sender: FDA-Public Use
  Company Number: JP-SPECTRUM PHARMACEUTICALS, INC.-17-Z-JP-00081

PATIENT

DRUGS (2)
  1. ZEVALIN [Suspect]
     Active Substance: IBRITUMOMAB TIUXETAN
     Indication: B-CELL SMALL LYMPHOCYTIC LYMPHOMA
     Dosage: UNK UNK, SINGLE
     Route: 042
     Dates: start: 20130528, end: 20130528
  2. ZEVALIN [Suspect]
     Active Substance: IBRITUMOMAB TIUXETAN
     Dosage: UNK UNK, SINGLE
     Route: 042
     Dates: start: 20130521, end: 20130521

REACTIONS (2)
  - Oesophageal carcinoma [Recovered/Resolved]
  - Off label use [Unknown]

NARRATIVE: CASE EVENT DATE: 20140602
